FAERS Safety Report 12179318 (Version 1)
Quarter: 2016Q1

REPORT INFORMATION
  Report Type: Spontaneous
  Country: PT (occurrence: PT)
  Receive Date: 20160314
  Receipt Date: 20160314
  Transmission Date: 20160526
  Serious: Yes (Other)
  Sender: FDA-Public Use
  Company Number: ALCN2016PT001768

PATIENT
  Age: 32 Year
  Sex: Female

DRUGS (4)
  1. VIGAMOX [Suspect]
     Active Substance: MOXIFLOXACIN HYDROCHLORIDE
     Indication: ADENOVIRUS INFECTION
     Dosage: 1 GTT, 5QD
     Route: 047
     Dates: start: 20160118
  2. VIGAMOX [Suspect]
     Active Substance: MOXIFLOXACIN HYDROCHLORIDE
     Dosage: 1 GTT, QID
     Route: 047
     Dates: end: 20160127
  3. COLIRCUSI GENTADEXA [Suspect]
     Active Substance: DEXAMETHASONE SODIUM PHOSPHATE\GENTAMICIN SULFATE\TETRAHYDROZOLINE HYDROCHLORIDE
     Indication: ADENOVIRUS INFECTION
     Dosage: 1 GTT, QID
     Route: 047
     Dates: start: 20160118, end: 20160127
  4. DEXAMYTREX /GFR/ [Suspect]
     Active Substance: DEXAMETHASONE SODIUM PHOSPHATE\GENTAMICIN SULFATE
     Indication: ADENOVIRUS INFECTION
     Dosage: 1 DF, QD
     Route: 047
     Dates: start: 20160118, end: 20160127

REACTIONS (4)
  - Ocular discomfort [Recovering/Resolving]
  - Eye pain [Recovering/Resolving]
  - Ocular vascular disorder [Recovering/Resolving]
  - Eye irritation [Recovering/Resolving]

NARRATIVE: CASE EVENT DATE: 20160122
